FAERS Safety Report 5052340-3 (Version None)
Quarter: 2006Q3

REPORT INFORMATION
  Report Type: 
  Country: None (occurrence: None)
  Receive Date: 20060717
  Receipt Date: 20060707
  Transmission Date: 20061208
  Serious: Yes (Hospitalization)
  Sender: FDA-Public Use
  Company Number: BR-JNJFOC-20060605512

PATIENT
  Sex: Female

DRUGS (2)
  1. TYLENOL (CAPLET) [Suspect]
     Indication: INFLUENZA
     Route: 048
  2. TYLENOL (CAPLET) [Suspect]
     Indication: PYREXIA
     Route: 048

REACTIONS (7)
  - DRUG EXPOSURE DURING PREGNANCY [None]
  - HEPATITIS [None]
  - INCORRECT DOSE ADMINISTERED [None]
  - INDUCED LABOUR [None]
  - OVERDOSE [None]
  - PREMATURE LABOUR [None]
  - TACHYCARDIA [None]
